FAERS Safety Report 22302876 (Version 2)
Quarter: 2023Q2

REPORT INFORMATION
  Report Type: Spontaneous
  Country: AT (occurrence: AT)
  Receive Date: 20230510
  Receipt Date: 20230611
  Transmission Date: 20230722
  Serious: Yes (Other)
  Sender: FDA-Public Use
  Company Number: AT-PHARMAESSENTIA-AT-2023-PEC-001324

PATIENT

DRUGS (3)
  1. BESREMI [Suspect]
     Active Substance: ROPEGINTERFERON ALFA-2B-NJFT
     Indication: Polycythaemia vera
     Dosage: UNK
     Route: 058
     Dates: start: 202010
  2. BESREMI [Suspect]
     Active Substance: ROPEGINTERFERON ALFA-2B-NJFT
     Dosage: UNK
     Route: 058
     Dates: end: 202208
  3. ASPIRIN [Concomitant]
     Active Substance: ASPIRIN
     Indication: Polycythaemia vera
     Dosage: UNK
     Route: 048
     Dates: start: 202006

REACTIONS (5)
  - Myocarditis [Recovered/Resolved]
  - Pericarditis [Unknown]
  - Arrhythmia [Unknown]
  - Tachycardia [Unknown]
  - COVID-19 [Unknown]
